FAERS Safety Report 11815728 (Version 2)
Quarter: 2016Q3

REPORT INFORMATION
  Report Type: Spontaneous
  Country: US (occurrence: US)
  Receive Date: 20151209
  Receipt Date: 20160721
  Transmission Date: 20161109
  Serious: Yes (Death)
  Sender: FDA-Public Use
  Company Number: US-PFIZER INC-2015426150

PATIENT
  Age: 32 Year
  Sex: Male

DRUGS (16)
  1. IBUPROFEN. [Suspect]
     Active Substance: IBUPROFEN
     Dosage: UNK
  2. LEVOTHYROXINE SODIUM. [Suspect]
     Active Substance: LEVOTHYROXINE SODIUM
     Dosage: UNK
  3. FLUOXETINE [Suspect]
     Active Substance: FLUOXETINE HYDROCHLORIDE
  4. OXYMORPHONE [Suspect]
     Active Substance: OXYMORPHONE
     Dosage: UNK
  5. OXYCODONE [Suspect]
     Active Substance: OXYCODONE
     Dosage: UNK
  6. DIAZEPAM. [Suspect]
     Active Substance: DIAZEPAM
  7. QUETIAPINE. [Suspect]
     Active Substance: QUETIAPINE
  8. MORPHINE SULFATE. [Suspect]
     Active Substance: MORPHINE SULFATE
  9. METFORMIN [Suspect]
     Active Substance: METFORMIN HYDROCHLORIDE
  10. ALPRAZOLAM. [Suspect]
     Active Substance: ALPRAZOLAM
     Dosage: UNK
  11. METHADONE [Suspect]
     Active Substance: METHADONE HYDROCHLORIDE
     Dosage: UNK
  12. CLONAZEPAM. [Suspect]
     Active Substance: CLONAZEPAM
     Dosage: UNK
  13. TEMAZEPAM. [Suspect]
     Active Substance: TEMAZEPAM
     Dosage: UNK
  14. NAPROXEN. [Suspect]
     Active Substance: NAPROXEN
     Dosage: UNK
  15. OXAZEPAM. [Suspect]
     Active Substance: OXAZEPAM
     Dosage: UNK
  16. HYDROCODONE BITARTRATE AND ACETAMINOPHEN [Suspect]
     Active Substance: ACETAMINOPHEN\HYDROCODONE BITARTRATE
     Dosage: UNK

REACTIONS (1)
  - Completed suicide [Fatal]

NARRATIVE: CASE EVENT DATE: 2014
